FAERS Safety Report 15982908 (Version 1)
Quarter: 2019Q1

REPORT INFORMATION
  Report Type: Spontaneous
  Country: TW (occurrence: TW)
  Receive Date: 20190219
  Receipt Date: 20190219
  Transmission Date: 20190418
  Serious: Yes (Other)
  Sender: FDA-Public Use
  Company Number: TW-PFIZER INC-2019052039

PATIENT
  Age: 30 Year
  Sex: Female

DRUGS (1)
  1. ADVIL [Suspect]
     Active Substance: IBUPROFEN
     Dosage: 2 DF, UNK
     Route: 048
     Dates: start: 20190203

REACTIONS (4)
  - Hypersensitivity [Recovering/Resolving]
  - Eyelid function disorder [Recovering/Resolving]
  - Gingival swelling [Recovering/Resolving]
  - Swelling [Recovering/Resolving]

NARRATIVE: CASE EVENT DATE: 20190203
